FAERS Safety Report 8776714 (Version 1)
Quarter: 2012Q4

REPORT INFORMATION
  Report Type: 
  Country: DE (occurrence: DE)
  Receive Date: 20120910
  Receipt Date: 20120910
  Transmission Date: 20130627
  Serious: Yes (Other)
  Sender: FDA-Public Use
  Company Number: DE-RANBAXY-2012RR-59596

PATIENT
  Sex: Female
  Weight: 132 kg

DRUGS (6)
  1. AMLODIPINE [Suspect]
     Indication: HYPERTENSION
     Dosage: 5 mg, UNK
     Route: 048
     Dates: start: 20120111, end: 20120111
  2. RAMIPRIL [Suspect]
     Indication: HYPERTENSION
     Dosage: 2.5 mg, UNK
     Route: 048
  3. MICARDIS [Suspect]
     Indication: HYPERTENSION
     Dosage: 40 mg, UNK
     Route: 048
  4. EXFORGE HCT [Suspect]
     Indication: HYPERTENSION
     Dosage: 10/160/25 mg
     Route: 048
  5. ALISKIREN HEMIFUMARATE AND AMLODIPINE BESYLATE [Suspect]
     Indication: HYPERTENSION
     Dosage: 150/5 mg
     Route: 048
  6. LEVOTHYROXINE [Concomitant]
     Indication: GOITRE
     Dosage: 50 mg, UNK
     Route: 048

REACTIONS (2)
  - Lip swelling [Recovered/Resolved]
  - Paraesthesia oral [Recovered/Resolved]
